FAERS Safety Report 8608938-6 (Version None)
Quarter: 2012Q3

REPORT INFORMATION
  Report Type: 
  Country: None (occurrence: None)
  Receive Date: 20120821
  Receipt Date: 20120814
  Transmission Date: 20120928
  Serious: Yes (Hospitalization)
  Sender: FDA-Public Use
  Company Number: GB-GLAXOSMITHKLINE-Z0016666A

PATIENT
  Sex: Male
  Weight: 80.9 kg

DRUGS (7)
  1. PERINDOPRIL ERBUMINE [Concomitant]
     Indication: HYPERTENSION
     Dosage: 2MG PER DAY
     Route: 048
     Dates: start: 20120301, end: 20120812
  2. OFATUMUMAB [Suspect]
     Indication: DIFFUSE LARGE B-CELL LYMPHOMA RECURRENT
     Dosage: 1000MG CYCLIC
     Route: 042
     Dates: start: 20120808
  3. CISPLATIN [Suspect]
     Indication: DIFFUSE LARGE B-CELL LYMPHOMA RECURRENT
     Dosage: 100MGM2 EVERY 3 WEEKS
     Route: 042
     Dates: start: 20120809
  4. DEXAMETHASONE [Suspect]
     Indication: DIFFUSE LARGE B-CELL LYMPHOMA RECURRENT
     Dosage: 40MG EVERY 3 WEEKS
     Route: 042
     Dates: start: 20120808
  5. ASPIRIN [Concomitant]
     Indication: COAGULOPATHY
     Dosage: 75MG PER DAY
     Route: 048
     Dates: start: 20110301, end: 20120812
  6. CYTARABINE [Suspect]
     Indication: DIFFUSE LARGE B-CELL LYMPHOMA RECURRENT
     Dosage: 4GM2 EVERY 3 WEEKS
     Route: 042
     Dates: start: 20120809
  7. PERSANTINE [Concomitant]
     Indication: COAGULOPATHY
     Dosage: 100MG PER DAY
     Route: 048
     Dates: start: 20110301, end: 20120812

REACTIONS (1)
  - LOWER GASTROINTESTINAL HAEMORRHAGE [None]
